FAERS Safety Report 4732969-X (Version None)
Quarter: 2005Q3

REPORT INFORMATION
  Report Type: 
  Country: None (occurrence: None)
  Receive Date: 20050802
  Receipt Date: 20050802
  Transmission Date: 20060218
  Serious: Yes (Life-Threatening, Hospitalization)
  Sender: FDA-Public Use
  Company Number: None

PATIENT
  Age: 59 Year
  Sex: Female
  Weight: 79.3795 kg

DRUGS (8)
  1. MORPHINE [Suspect]
     Indication: PAIN
     Dosage: 5 MG IV   PO2 + PCA
     Route: 042
     Dates: start: 20050511
  2. AVALIDE [Concomitant]
  3. SYNTHROID [Concomitant]
  4. ATARAX [Concomitant]
  5. ANCEF [Concomitant]
  6. TORADOL [Concomitant]
  7. PREVACID [Concomitant]
  8. ZOFRAN [Concomitant]

REACTIONS (4)
  - CARDIO-RESPIRATORY ARREST [None]
  - HYPOVENTILATION [None]
  - RESPIRATORY DEPRESSION [None]
  - RESPIRATORY RATE DECREASED [None]
